FAERS Safety Report 13557247 (Version 1)
Quarter: 2017Q2

REPORT INFORMATION
  Report Type: Spontaneous
  Country: US (occurrence: US)
  Receive Date: 20170517
  Receipt Date: 20170517
  Transmission Date: 20170830
  Serious: Yes (Hospitalization)
  Sender: FDA-Public Use
  Company Number: None

PATIENT
  Age: 52 Year
  Sex: Male
  Weight: 38.7 kg

DRUGS (8)
  1. ICLUSIG [Concomitant]
     Active Substance: PONATINIB
  2. AMBIEN [Concomitant]
     Active Substance: ZOLPIDEM TARTRATE
  3. COLACE [Concomitant]
     Active Substance: DOCUSATE SODIUM
  4. MAGONATE [Concomitant]
     Active Substance: MAGNESIUM CARBONATE
  5. EPCLUSA [Suspect]
     Active Substance: SOFOSBUVIR\VELPATASVIR
     Indication: HEPATITIS C
     Dates: start: 20170222
  6. PRINIVIL [Concomitant]
     Active Substance: LISINOPRIL
  7. MYLANTA [Concomitant]
     Active Substance: ALUMINUM HYDROXIDE\DIMETHICONE\MAGNESIUM HYDROXIDE
  8. ZOFRAN ODT [Concomitant]
     Active Substance: ONDANSETRON HYDROCHLORIDE

REACTIONS (5)
  - Atrial fibrillation [None]
  - Staphylococcal infection [None]
  - Leukocytosis [None]
  - Bradycardia [None]
  - Meningitis staphylococcal [None]

NARRATIVE: CASE EVENT DATE: 20170228
